FAERS Safety Report 15325278 (Version 4)
Quarter: 2019Q3

REPORT INFORMATION
  Report Type: Report from Study
  Country: US (occurrence: US)
  Receive Date: 20180828
  Receipt Date: 20190920
  Transmission Date: 20191004
  Serious: Yes (Hospitalization, Disabling, Other)
  Sender: FDA-Public Use
  Company Number: US-SA-2018SA203391

PATIENT
  Age: 36 Year
  Sex: Female

DRUGS (6)
  1. PREDNISONE. [Concomitant]
     Active Substance: PREDNISONE
     Dosage: 20 MG
  2. ALEMTUZUMAB [Suspect]
     Active Substance: ALEMTUZUMAB
     Indication: MULTIPLE SCLEROSIS
     Dosage: 12 MG, QD
     Route: 041
     Dates: start: 20180716, end: 20180720
  3. ALEMTUZUMAB [Suspect]
     Active Substance: ALEMTUZUMAB
     Indication: RELAPSING MULTIPLE SCLEROSIS
  4. SOLU-MEDROL [Concomitant]
     Active Substance: METHYLPREDNISOLONE SODIUM SUCCINATE
     Dosage: 1000 MG, QD
  5. NEURONTIN [Concomitant]
     Active Substance: GABAPENTIN
     Dosage: 300 MG, QD
  6. ZANAFLEX [Concomitant]
     Active Substance: TIZANIDINE HYDROCHLORIDE
     Indication: NEURALGIA
     Dosage: 4 MG, HS

REACTIONS (53)
  - Feeling abnormal [Not Recovered/Not Resolved]
  - Feeling abnormal [Recovered/Resolved]
  - Abdominal discomfort [Not Recovered/Not Resolved]
  - Cough [Recovered/Resolved]
  - Dyspnoea [Recovered/Resolved]
  - Pyrexia [Recovered/Resolved]
  - Eye pain [Not Recovered/Not Resolved]
  - Asthenia [Not Recovered/Not Resolved]
  - Fatigue [Not Recovered/Not Resolved]
  - Sensory disturbance [Not Recovered/Not Resolved]
  - Migraine [Not Recovered/Not Resolved]
  - Muscle twitching [Not Recovered/Not Resolved]
  - Muscular weakness [Unknown]
  - Urinary tract infection [Not Recovered/Not Resolved]
  - Loss of consciousness [Recovered/Resolved]
  - Haemoptysis [Recovered/Resolved]
  - Headache [Not Recovered/Not Resolved]
  - Loss of personal independence in daily activities [Not Recovered/Not Resolved]
  - Sleep disorder [Not Recovered/Not Resolved]
  - Hyperhidrosis [Not Recovered/Not Resolved]
  - Joint lock [Not Recovered/Not Resolved]
  - Ear pain [Unknown]
  - Muscular dystrophy [Unknown]
  - Laboratory test abnormal [Unknown]
  - Pain [Not Recovered/Not Resolved]
  - Seizure [Unknown]
  - Dizziness [Recovered/Resolved]
  - Wheezing [Recovered/Resolved]
  - Hypoaesthesia [Not Recovered/Not Resolved]
  - Back pain [Not Recovered/Not Resolved]
  - Pyrexia [Unknown]
  - Dystonia [Not Recovered/Not Resolved]
  - Facial paralysis [Not Recovered/Not Resolved]
  - Pleurisy [Recovered/Resolved]
  - Musculoskeletal pain [Unknown]
  - Pneumonitis [Recovered/Resolved]
  - Unevaluable event [Unknown]
  - Cerebrovascular accident [Not Recovered/Not Resolved]
  - Chest pain [Recovered/Resolved]
  - Influenza like illness [Recovered/Resolved]
  - Neck pain [Unknown]
  - Micturition urgency [Not Recovered/Not Resolved]
  - Multiple sclerosis [Unknown]
  - Temperature intolerance [Not Recovered/Not Resolved]
  - Chest discomfort [Recovered/Resolved]
  - Neuralgia [Not Recovered/Not Resolved]
  - Paraesthesia [Not Recovered/Not Resolved]
  - Gait disturbance [Recovered/Resolved]
  - Nasopharyngitis [Not Recovered/Not Resolved]
  - Sputum discoloured [Unknown]
  - Cognitive disorder [Not Recovered/Not Resolved]
  - Condition aggravated [Not Recovered/Not Resolved]
  - Spinal pain [Unknown]

NARRATIVE: CASE EVENT DATE: 2018
